FAERS Safety Report 5766243-X (Version None)
Quarter: 2008Q2

REPORT INFORMATION
  Report Type: 
  Country: None (occurrence: None)
  Receive Date: 20080611
  Receipt Date: 20080331
  Transmission Date: 20081010
  Serious: No
  Sender: FDA-Public Use
  Company Number: US-ABBOTT-08P-163-0445252-00

PATIENT
  Sex: Female
  Weight: 40.406 kg

DRUGS (7)
  1. HUMIRA [Suspect]
     Indication: RHEUMATOID ARTHRITIS
     Route: 058
     Dates: start: 20070901
  2. HUMIRA [Suspect]
  3. HUMIRA [Suspect]
  4. METHOTREXATE [Concomitant]
     Indication: RHEUMATOID ARTHRITIS
     Route: 048
  5. TRAZODONE HCL [Concomitant]
     Indication: SLEEP DISORDER THERAPY
     Route: 048
  6. IRON [Concomitant]
     Indication: ANAEMIA
     Route: 048
     Dates: start: 20070901
  7. FOLIC ACID [Concomitant]
     Indication: VITAMIN SUPPLEMENTATION
     Route: 048

REACTIONS (5)
  - ARTHRALGIA [None]
  - DRUG DOSE OMISSION [None]
  - HEADACHE [None]
  - PHARYNGOLARYNGEAL PAIN [None]
  - UPPER RESPIRATORY TRACT INFECTION [None]
